FAERS Safety Report 4702933-5 (Version None)
Quarter: 2005Q2

REPORT INFORMATION
  Report Type: 
  Country: None (occurrence: None)
  Receive Date: 20050629
  Receipt Date: 20050622
  Transmission Date: 20051028
  Serious: Yes (Hospitalization, Other)
  Sender: FDA-Public Use
  Company Number: US-JNJFOC-20050507365

PATIENT
  Sex: Male
  Weight: 57.61 kg

DRUGS (11)
  1. DURAGESIC-100 [Suspect]
     Route: 062
     Dates: start: 20000101
  2. DURAGESIC-100 [Suspect]
     Route: 062
     Dates: start: 20000101
  3. PERCOCET [Concomitant]
  4. PERCOCET [Concomitant]
  5. CLONIPINE [Concomitant]
  6. ASPIRIN [Concomitant]
  7. STOOL SOFTENERS [Concomitant]
  8. DILANTIN [Concomitant]
  9. GABAPENTIN [Concomitant]
  10. SKELEX [Concomitant]
     Indication: SLEEP DISORDER
     Route: 049
  11. KLONOPIN [Concomitant]
     Route: 049

REACTIONS (12)
  - APPLICATION SITE ERYTHEMA [None]
  - APPLICATION SITE INFECTION [None]
  - APPLICATION SITE IRRITATION [None]
  - BODY HEIGHT DECREASED [None]
  - DELUSION [None]
  - MALAISE [None]
  - MASS [None]
  - STAPHYLOCOCCAL INFECTION [None]
  - SUICIDAL IDEATION [None]
  - THERAPEUTIC RESPONSE DECREASED [None]
  - VERTEBRAL COLUMN MASS [None]
  - WEIGHT DECREASED [None]
